FAERS Safety Report 25023935 (Version 1)
Quarter: 2025Q1

REPORT INFORMATION
  Report Type: Spontaneous
  Country: DE (occurrence: DE)
  Receive Date: 20250228
  Receipt Date: 20250228
  Transmission Date: 20250408
  Serious: Yes (Other)
  Sender: TAKEDA
  Company Number: DE-TAKEDA-2025TUS018897

PATIENT
  Age: 43 Year
  Sex: Female
  Weight: 71 kg

DRUGS (2)
  1. ENTYVIO [Suspect]
     Active Substance: VEDOLIZUMAB
     Indication: Inflammatory bowel disease
  2. ENTYVIO [Suspect]
     Active Substance: VEDOLIZUMAB

REACTIONS (9)
  - Anaphylactic reaction [Recovered/Resolved]
  - Pallor [Recovering/Resolving]
  - Malaise [Recovering/Resolving]
  - Blood pressure decreased [Recovering/Resolving]
  - Anal rash [Recovering/Resolving]
  - Pustule [Recovering/Resolving]
  - Rash [Recovering/Resolving]
  - Headache [Recovering/Resolving]
  - Nausea [Recovered/Resolved]

NARRATIVE: CASE EVENT DATE: 20250130
